FAERS Safety Report 5665316-X (Version None)
Quarter: 2008Q1

REPORT INFORMATION
  Report Type: 
  Country: None (occurrence: None)
  Receive Date: 20080314
  Receipt Date: 20071218
  Transmission Date: 20080703
  Serious: No
  Sender: FDA-Public Use
  Company Number: US-ABBOTT-07P-163-0421650-00

PATIENT
  Sex: Male
  Weight: 79.45 kg

DRUGS (4)
  1. HUMIRA [Suspect]
     Indication: PSORIATIC ARTHROPATHY
     Route: 058
     Dates: start: 20070420, end: 20071001
  2. HUMIRA [Suspect]
     Route: 058
     Dates: start: 20071001
  3. HUMIRA [Suspect]
     Route: 058
  4. ESCITALOPRAM OXALATE [Concomitant]
     Indication: DEPRESSION
     Route: 048

REACTIONS (6)
  - ARTHRALGIA [None]
  - DRUG INEFFECTIVE [None]
  - HEADACHE [None]
  - IMPAIRED HEALING [None]
  - RHINORRHOEA [None]
  - SINUSITIS [None]
